FAERS Safety Report 18272364 (Version 1)
Quarter: 2020Q3

REPORT INFORMATION
  Report Type: Spontaneous
  Country: US (occurrence: US)
  Receive Date: 20200916
  Receipt Date: 20200916
  Transmission Date: 20201103
  Serious: Yes (Death, Other)
  Sender: FDA-Public Use
  Company Number: US-SA-2020SA249722

PATIENT

DRUGS (1)
  1. ZANTAC 75 [Suspect]
     Active Substance: RANITIDINE HYDROCHLORIDE
     Dosage: UNK
     Dates: start: 199501, end: 201512

REACTIONS (2)
  - Death [Fatal]
  - Lung neoplasm malignant [Unknown]

NARRATIVE: CASE EVENT DATE: 20170911
